FAERS Safety Report 8937098 (Version 1)
Quarter: 2012Q4

REPORT INFORMATION
  Report Type: Spontaneous
  Country: US (occurrence: None)
  Receive Date: 20121128
  Receipt Date: 20121128
  Transmission Date: 20130627
  Serious: Yes (Life-Threatening)
  Sender: FDA-Public Use
  Company Number: None

PATIENT
  Age: 51 Year
  Sex: Female

DRUGS (1)
  1. HYDROMORPHONE 2 MG/1 ML [Suspect]
     Dosage: 4 mg IV bolus
     Route: 040

REACTIONS (2)
  - Respiratory rate decreased [None]
  - Unresponsive to stimuli [None]
